FAERS Safety Report 12168052 (Version 1)
Quarter: 2016Q1

REPORT INFORMATION
  Report Type: Spontaneous
  Country: ES (occurrence: ES)
  Receive Date: 20160310
  Receipt Date: 20160310
  Transmission Date: 20160526
  Serious: Yes (Other)
  Sender: FDA-Public Use
  Company Number: ES-KADMON PHARMACEUTICALS, LLC-KAD201308-000976

PATIENT
  Age: 39 Year
  Sex: Male

DRUGS (2)
  1. PEGYLATED INTERFERON NOS [Suspect]
     Active Substance: PEGINTERFERON ALFA-2A OR PEGINTERFERON ALFA-2B OR PEGINTERFERON BETA-1A OR PEGINTERFERON LAMBDA-1A
     Indication: CHRONIC HEPATITIS C
  2. RIBAVIRIN. [Suspect]
     Active Substance: RIBAVIRIN
     Indication: CHRONIC HEPATITIS C

REACTIONS (2)
  - Portal vein thrombosis [Recovered/Resolved]
  - Hepatic cirrhosis [Unknown]
